FAERS Safety Report 10069643 (Version 2)
Quarter: 2014Q2

REPORT INFORMATION
  Report Type: Spontaneous
  Country: US (occurrence: US)
  Receive Date: 20140410
  Receipt Date: 20140509
  Transmission Date: 20141212
  Serious: No
  Sender: FDA-Public Use
  Company Number: US-009507513-1404USA004265

PATIENT
  Sex: Female
  Weight: 110.66 kg

DRUGS (1)
  1. NEXPLANON [Suspect]
     Dosage: UNKNOWN,
     Route: 059
     Dates: start: 20140211

REACTIONS (5)
  - Migraine [Recovered/Resolved]
  - Nausea [Unknown]
  - Vomiting [Unknown]
  - Device breakage [Unknown]
  - Product quality issue [Unknown]
